FAERS Safety Report 23600447 (Version 1)
Quarter: 2024Q1

REPORT INFORMATION
  Report Type: Spontaneous
  Country: JP (occurrence: JP)
  Receive Date: 20240306
  Receipt Date: 20240306
  Transmission Date: 20240409
  Serious: Yes (Death, Other)
  Sender: FDA-Public Use
  Company Number: JP-TAKEDA-2024TJP003321

PATIENT
  Age: 70 Year
  Sex: Male
  Weight: 53 kg

DRUGS (1)
  1. CABOMETYX [Suspect]
     Active Substance: CABOZANTINIB S-MALATE
     Indication: Hepatocellular carcinoma
     Dosage: 20 MG
     Route: 065
     Dates: start: 20230222, end: 20230526

REACTIONS (1)
  - Death [Fatal]

NARRATIVE: CASE EVENT DATE: 20231203
